FAERS Safety Report 23045524 (Version 1)
Quarter: 2023Q4

REPORT INFORMATION
  Report Type: Spontaneous
  Country: US (occurrence: US)
  Receive Date: 20231009
  Receipt Date: 20231009
  Transmission Date: 20240110
  Serious: No
  Sender: FDA-Public Use
  Company Number: US-SA-SAC20231005000943

PATIENT
  Sex: Male
  Weight: 33.107 kg

DRUGS (6)
  1. FABRAZYME [Suspect]
     Active Substance: AGALSIDASE BETA
     Indication: Fabry^s disease
     Dosage: 35 MG, QOW
     Route: 042
     Dates: start: 20220707
  2. FERROUS SULFATE [Concomitant]
     Active Substance: FERROUS SULFATE
  3. PROBIOTICS NOS [Concomitant]
     Active Substance: PROBIOTICS NOS
  4. VITAMINS NOS [Concomitant]
     Active Substance: VITAMINS
  5. XYZAL [Concomitant]
     Active Substance: LEVOCETIRIZINE DIHYDROCHLORIDE
  6. MAGNESIUM [Concomitant]
     Active Substance: MAGNESIUM

REACTIONS (10)
  - Gastrointestinal disorder [Unknown]
  - Migraine [Unknown]
  - Swelling [Unknown]
  - Abdominal pain upper [Unknown]
  - Erythema [Unknown]
  - Vomiting [Unknown]
  - Pain in extremity [Unknown]
  - Back pain [Unknown]
  - Urticaria [Unknown]
  - Skin warm [Unknown]
